FAERS Safety Report 8815264 (Version 1)
Quarter: 2012Q4

REPORT INFORMATION
  Report Type: Report from Study
  Country: US (occurrence: US)
  Receive Date: 20120928
  Receipt Date: 20120928
  Transmission Date: 20130627
  Serious: Yes (Death, Hospitalization)
  Sender: FDA-Public Use
  Company Number: US-US-EMD SERONO, INC.-7163635

PATIENT
  Sex: Female

DRUGS (1)
  1. REBIF [Suspect]
     Indication: MULTIPLE SCLEROSIS
     Route: 058
     Dates: start: 20110326

REACTIONS (10)
  - Hypertension [Fatal]
  - Renal failure [Fatal]
  - Reflux gastritis [Fatal]
  - Back pain [Fatal]
  - Multiple sclerosis [Fatal]
  - Food poisoning [Unknown]
  - Dehydration [Unknown]
  - Malnutrition [Unknown]
  - Increased bronchial secretion [Unknown]
  - Gastric ulcer haemorrhage [Unknown]
